FAERS Safety Report 6154541-X (Version None)
Quarter: 2009Q2

REPORT INFORMATION
  Report Type: 
  Country: None (occurrence: None)
  Receive Date: 20090410
  Receipt Date: 20090410
  Transmission Date: 20091009
  Serious: Yes (Hospitalization)
  Sender: FDA-Public Use
  Company Number: None

PATIENT
  Age: 51 Year
  Sex: Female

DRUGS (1)
  1. EFAVIRENZ/LAMIVUDINE/TENOFOVIR DISOPROXIL FUMARATE [Suspect]
     Indication: HIV INFECTION
     Dosage: 1 EVERY DAY PO
     Route: 048
     Dates: start: 20090303, end: 20090401

REACTIONS (8)
  - ANAEMIA [None]
  - DIARRHOEA [None]
  - HEPATITIS [None]
  - HEPATOTOXICITY [None]
  - HYPONATRAEMIA [None]
  - HYPOTENSION [None]
  - INTERNATIONAL NORMALISED RATIO ABNORMAL [None]
  - URINARY TRACT INFECTION [None]
